FAERS Safety Report 7784759-1 (Version None)
Quarter: 2011Q3

REPORT INFORMATION
  Report Type: 
  Country: None (occurrence: None)
  Receive Date: 20110928
  Receipt Date: 20110922
  Transmission Date: 20111222
  Serious: Yes (Hospitalization)
  Sender: FDA-Public Use
  Company Number: AU-B.I. PHARMACEUTICALS,INC./RIDGEFIELD-2011-AU-00937AU

PATIENT
  Sex: Male
  Weight: 71 kg

DRUGS (5)
  1. TENORMIN [Concomitant]
  2. ZYLOPRIM [Concomitant]
  3. PRADAXA [Suspect]
     Indication: ATRIAL FIBRILLATION
     Dosage: 220 MG
     Dates: start: 20110805, end: 20110813
  4. COLGOUT [Concomitant]
     Dosage: VARIABLE
  5. PRAVASTATIN [Concomitant]

REACTIONS (2)
  - HEPATITIS [None]
  - PNEUMONIA [None]
